FAERS Safety Report 3971583 (Version 2)
Quarter: 2015Q4

REPORT INFORMATION
  Report Type: Spontaneous
  Country: ZA (occurrence: ZA)
  Receive Date: 20030722
  Receipt Date: 20151207
  Transmission Date: 20160305
  Serious: Yes (Other)
  Sender: FDA-Public Use
  Company Number: ZA-BRISTOL-MYERS SQUIBB COMPANY-12327581

PATIENT
  Age: 29 Year
  Sex: Female

DRUGS (2)
  1. EFAVIRENZ [Suspect]
     Active Substance: EFAVIRENZ
     Indication: HIV INFECTION
     Dosage: UNK UNK, TID
     Route: 048
     Dates: start: 20020828
  2. COMBIVIR [Suspect]
     Active Substance: LAMIVUDINE\ZIDOVUDINE
     Indication: HIV INFECTION
     Dosage: UNK, BID
     Route: 048
     Dates: start: 20020828

REACTIONS (4)
  - Normal newborn [Unknown]
  - Caesarean section [Unknown]
  - Premature rupture of membranes [Recovered/Resolved]
  - Pregnancy [Recovered/Resolved]

NARRATIVE: CASE EVENT DATE: 2002
